FAERS Safety Report 23820254 (Version 2)
Quarter: 2024Q2

REPORT INFORMATION
  Report Type: Report from Study
  Country: US (occurrence: US)
  Receive Date: 20240506
  Receipt Date: 20240507
  Transmission Date: 20240715
  Serious: Yes (Other)
  Sender: FDA-Public Use
  Company Number: US-ABBVIE-5743131

PATIENT
  Age: 38 Year
  Sex: Female
  Weight: 61.688 kg

DRUGS (2)
  1. RINVOQ [Suspect]
     Active Substance: UPADACITINIB
     Indication: Crohn^s disease
     Dosage: FORM STRENGTH: 45 MG
     Route: 048
     Dates: start: 20231201, end: 202402
  2. RINVOQ [Suspect]
     Active Substance: UPADACITINIB
     Indication: Crohn^s disease
     Dosage: STRENGTH-30 MILLIGRAM
     Route: 048
     Dates: start: 202402

REACTIONS (6)
  - Loss of consciousness [Recovered/Resolved]
  - Crohn^s disease [Not Recovered/Not Resolved]
  - Blood potassium decreased [Recovering/Resolving]
  - Heart rate increased [Recovered/Resolved]
  - Nausea [Recovered/Resolved]
  - Dyspnoea [Recovered/Resolved]

NARRATIVE: CASE EVENT DATE: 20240301
